FAERS Safety Report 10562104 (Version 1)
Quarter: 2014Q4

REPORT INFORMATION
  Report Type: Spontaneous
  Country: US (occurrence: None)
  Receive Date: 20141103
  Receipt Date: 20141103
  Transmission Date: 20150529
  Serious: Yes (Life-Threatening, Other)
  Sender: FDA-Public Use
  Company Number: None

PATIENT
  Age: 85 Year
  Sex: Female
  Weight: 87.2 kg

DRUGS (16)
  1. ALBUMIN [Concomitant]
     Active Substance: ALBUMIN (HUMAN)
  2. VITAMIN K [Concomitant]
     Active Substance: PHYTONADIONE
  3. PROFILNINE [Suspect]
     Active Substance: FACTOR IX COMPLEX
     Indication: PROCOAGULANT THERAPY
     Dosage: 4500 UNITS (TOTAL), ONCE, INTRAVNEOUS
     Route: 042
     Dates: start: 20140827, end: 20140827
  4. METOPROLOL [Concomitant]
     Active Substance: METOPROLOL
  5. LISINOPRIL. [Concomitant]
     Active Substance: LISINOPRIL
  6. TDAP (ADACELL) [Concomitant]
  7. LEVETIRACETAM. [Concomitant]
     Active Substance: LEVETIRACETAM
  8. HYDROMORPHONE [Concomitant]
     Active Substance: HYDROMORPHONE
  9. PROFILNINE [Suspect]
     Active Substance: FACTOR IX COMPLEX
     Indication: FALL
     Dosage: 4500 UNITS (TOTAL), ONCE, INTRAVNEOUS
     Route: 042
     Dates: start: 20140827, end: 20140827
  10. PROFILNINE [Suspect]
     Active Substance: FACTOR IX COMPLEX
     Indication: PROCOAGULANT THERAPY
     Dosage: 4500 UNITS (TOTAL), ONCE, INTRAVNEOUS
     Route: 042
     Dates: start: 20140827, end: 20140827
  11. PROMETHAZINE [Concomitant]
     Active Substance: PROMETHAZINE\PROMETHAZINE HYDROCHLORIDE
  12. PROFILNINE [Suspect]
     Active Substance: FACTOR IX COMPLEX
     Indication: FALL
     Dosage: 4500 UNITS (TOTAL), ONCE, INTRAVNEOUS
     Route: 042
     Dates: start: 20140827, end: 20140827
  13. D5W/0.45% [Concomitant]
  14. HYDRALAZINE [Concomitant]
     Active Substance: HYDRALAZINE HYDROCHLORIDE
  15. METOCLOPRAMIDE. [Concomitant]
     Active Substance: METOCLOPRAMIDE
  16. ONDANSETRON [Concomitant]
     Active Substance: ONDANSETRON

REACTIONS (1)
  - Thrombotic thrombocytopenic purpura [None]

NARRATIVE: CASE EVENT DATE: 20140827
